FAERS Safety Report 14003809 (Version 1)
Quarter: 2017Q3

REPORT INFORMATION
  Report Type: Spontaneous
  Country: FR (occurrence: FR)
  Receive Date: 20170923
  Receipt Date: 20170923
  Transmission Date: 20171128
  Serious: Yes (Other)
  Sender: FDA-Public Use
  Company Number: FR-MERCK KGAA-2027460

PATIENT
  Age: 32 Year
  Sex: Female

DRUGS (1)
  1. NOVOTHYROX [Suspect]
     Active Substance: LEVOTHYROXINE SODIUM
     Indication: PRODUCT USED FOR UNKNOWN INDICATION

REACTIONS (6)
  - Swelling [Unknown]
  - Fatigue [Unknown]
  - Depression [Unknown]
  - Headache [Unknown]
  - Blood thyroid stimulating hormone increased [Unknown]
  - Anxiety [Unknown]

NARRATIVE: CASE EVENT DATE: 20170821
